FAERS Safety Report 14213388 (Version 2)
Quarter: 2018Q1

REPORT INFORMATION
  Report Type: Report from Study
  Country: JP (occurrence: JP)
  Receive Date: 20171122
  Receipt Date: 20180312
  Transmission Date: 20180508
  Serious: Yes (Death, Hospitalization, Other)
  Sender: FDA-Public Use
  Company Number: PHJP2017JP025854

PATIENT
  Age: 34 Year
  Sex: Male

DRUGS (1)
  1. ZYKADIA [Suspect]
     Active Substance: CERITINIB
     Indication: NON-SMALL CELL LUNG CANCER
     Dosage: 750 MG, QD
     Route: 048
     Dates: start: 20170106, end: 20170213

REACTIONS (13)
  - Metastases to central nervous system [Fatal]
  - Malignant neoplasm progression [Fatal]
  - Altered state of consciousness [Unknown]
  - Nausea [Recovering/Resolving]
  - Muscular weakness [Unknown]
  - Diarrhoea [Recovering/Resolving]
  - Metastases to meninges [Fatal]
  - Speech disorder [Unknown]
  - Dizziness [Unknown]
  - Headache [Unknown]
  - Non-small cell lung cancer [Not Recovered/Not Resolved]
  - Condition aggravated [Not Recovered/Not Resolved]
  - Language disorder [Recovering/Resolving]

NARRATIVE: CASE EVENT DATE: 20170106
